FAERS Safety Report 24325140 (Version 1)
Quarter: 2024Q3

REPORT INFORMATION
  Report Type: Spontaneous
  Country: US (occurrence: US)
  Receive Date: 20240916
  Receipt Date: 20240916
  Transmission Date: 20241017
  Serious: Yes (Hospitalization, Other)
  Sender: BRISTOL MYERS SQUIBB
  Company Number: US-BRISTOL-MYERS SQUIBB COMPANY-2024-144099

PATIENT
  Age: 79 Year
  Sex: Male

DRUGS (3)
  1. APIXABAN [Suspect]
     Active Substance: APIXABAN
     Indication: Atrial fibrillation
  2. ASPIRIN [Suspect]
     Active Substance: ASPIRIN
     Indication: Product used for unknown indication
  3. METOPROLOL [Concomitant]
     Active Substance: METOPROLOL
     Indication: Hypertension

REACTIONS (3)
  - Upper gastrointestinal haemorrhage [Unknown]
  - Thrombocytopenia [Unknown]
  - Anaemia [Unknown]
